FAERS Safety Report 16956538 (Version 1)
Quarter: 2019Q4

REPORT INFORMATION
  Report Type: Spontaneous
  Country: US (occurrence: US)
  Receive Date: 20190905
  Receipt Date: 20190905
  Transmission Date: 20200122
  Serious: Yes (Hospitalization)
  Sender: FDA-Public Use
  Company Number: None

PATIENT
  Age: 76 Year
  Sex: Female

DRUGS (1)
  1. GLATOPA [Suspect]
     Active Substance: GLATIRAMER ACETATE
     Indication: MULTIPLE SCLEROSIS
     Route: 058
     Dates: start: 20190125

REACTIONS (5)
  - Gastric stapling [None]
  - Constipation [None]
  - Small intestinal obstruction [None]
  - Vomiting [None]
  - Bowel movement irregularity [None]

NARRATIVE: CASE EVENT DATE: 20190613
